FAERS Safety Report 4894509-4 (Version None)
Quarter: 2006Q1

REPORT INFORMATION
  Report Type: 
  Country: None (occurrence: None)
  Receive Date: 20060127
  Receipt Date: 20060118
  Transmission Date: 20060701
  Serious: Yes (Death, Hospitalization)
  Sender: FDA-Public Use
  Company Number: US-JNJFOC-20060104068

PATIENT
  Sex: Male

DRUGS (11)
  1. NESIRITIDE [Suspect]
     Route: 042
  2. ASPIRIN [Concomitant]
  3. PLAVIX [Concomitant]
  4. ALTACE [Concomitant]
  5. SYNTHROID [Concomitant]
  6. LIPITOR [Concomitant]
  7. GLUCOPHAGE [Concomitant]
  8. NIASPAN [Concomitant]
  9. NOROXIN [Concomitant]
  10. FOLTX [Concomitant]
  11. METANX [Concomitant]

REACTIONS (10)
  - ANGINA PECTORIS [None]
  - ARTERIOSCLEROSIS CORONARY ARTERY [None]
  - CARDIOGENIC SHOCK [None]
  - CORONARY ARTERY STENOSIS [None]
  - HAEMATOMA [None]
  - MYOCARDIAL INFARCTION [None]
  - OFF LABEL USE [None]
  - RENAL TUBULAR NECROSIS [None]
  - STREPTOCOCCAL SEPSIS [None]
  - TREMOR [None]
